FAERS Safety Report 4282446-8 (Version None)
Quarter: 2004Q1

REPORT INFORMATION
  Report Type: 
  Country: None (occurrence: None)
  Receive Date: 20040129
  Receipt Date: 20040116
  Transmission Date: 20041129
  Serious: Yes (Other)
  Sender: FDA-Public Use
  Company Number: 2004004210

PATIENT
  Age: 74 Year
  Sex: Female

DRUGS (3)
  1. LIPITOR [Suspect]
     Indication: ILL-DEFINED DISORDER
  2. TOCOPHEROL CONCENTRATE CAP [Concomitant]
  3. GINKGO BILOBA (GINKGO BILOBA) [Concomitant]

REACTIONS (3)
  - AMNESIA [None]
  - LIVER DISORDER [None]
  - MYOCARDIAL INFARCTION [None]
